FAERS Safety Report 11660609 (Version 3)
Quarter: 2015Q4

REPORT INFORMATION
  Report Type: Spontaneous
  Country: JP (occurrence: JP)
  Receive Date: 20151026
  Receipt Date: 20151113
  Transmission Date: 20160304
  Serious: No
  Sender: FDA-Public Use
  Company Number: JP-GLAXOSMITHKLINE-JP2015JPN148917

PATIENT
  Age: 15 Year
  Sex: Female

DRUGS (2)
  1. DUAC GEL [Suspect]
     Active Substance: BENZOYL PEROXIDE\CLINDAMYCIN PHOSPHATE
     Indication: ACNE
     Dosage: UNK, QD
     Route: 050
     Dates: start: 201509
  2. DUAC GEL [Suspect]
     Active Substance: BENZOYL PEROXIDE\CLINDAMYCIN PHOSPHATE
     Dosage: UNK, QD
     Route: 050
     Dates: start: 20151015, end: 20151016

REACTIONS (8)
  - Application site swelling [Unknown]
  - Effusion [Unknown]
  - Application site erythema [Unknown]
  - Skin exfoliation [Unknown]
  - Application site erythema [Unknown]
  - Application site erythema [Unknown]
  - Dermatitis contact [Recovering/Resolving]
  - Application site erosion [Unknown]

NARRATIVE: CASE EVENT DATE: 201509
